FAERS Safety Report 12722315 (Version 1)
Quarter: 2016Q3

REPORT INFORMATION
  Report Type: Spontaneous
  Country: US (occurrence: US)
  Receive Date: 20160907
  Receipt Date: 20160907
  Transmission Date: 20161109
  Serious: Yes (Other)
  Sender: FDA-Public Use
  Company Number: US-THE MENTHOLATUM COMPANY-1057141

PATIENT
  Age: 32 Year
  Sex: Female
  Weight: 83.18 kg

DRUGS (1)
  1. OXY DAILY DEFENSE CLEANSING PADS [Suspect]
     Active Substance: SALICYLIC ACID
     Indication: ACNE
     Route: 061
     Dates: start: 20160821, end: 20160821

REACTIONS (2)
  - Skin discolouration [Recovering/Resolving]
  - Skin irritation [Recovering/Resolving]

NARRATIVE: CASE EVENT DATE: 20160821
